FAERS Safety Report 9667954 (Version 2)
Quarter: 2017Q2

REPORT INFORMATION
  Report Type: Spontaneous
  Country: US (occurrence: US)
  Receive Date: 20131104
  Receipt Date: 20170628
  Transmission Date: 20170830
  Serious: Yes (Death, Life-Threatening, Other)
  Sender: FDA-Public Use
  Company Number: US-PFIZER INC-2013311478

PATIENT
  Age: 6 Month
  Sex: Male
  Weight: 8 kg

DRUGS (2)
  1. AZITHROMYCIN ANHYDROUS. [Suspect]
     Active Substance: AZITHROMYCIN ANHYDROUS
     Indication: LUNG INFILTRATION
     Dosage: 500 MG, UNK
     Route: 042
  2. CEFTRIAXONE. [Concomitant]
     Active Substance: CEFTRIAXONE
     Indication: LUNG INFILTRATION
     Dosage: 50 MG/KG, UNK
     Route: 042

REACTIONS (10)
  - Bradycardia [Unknown]
  - Off label use [Unknown]
  - Circulatory collapse [Fatal]
  - Cardiac arrest [Unknown]
  - Overdose [Unknown]
  - Cyanosis [Unknown]
  - Unresponsive to stimuli [Unknown]
  - Listless [Unknown]
  - Brain death [Fatal]
  - Hypotension [Unknown]
